FAERS Safety Report 9580368 (Version 2)
Quarter: 2013Q4

REPORT INFORMATION
  Report Type: Spontaneous
  Country: CN (occurrence: CN)
  Receive Date: 20131002
  Receipt Date: 20131119
  Transmission Date: 20140711
  Serious: Yes (Hospitalization)
  Sender: FDA-Public Use
  Company Number: CN-ASTELLAS-2013JP010079

PATIENT
  Age: 42 Year
  Sex: Male

DRUGS (2)
  1. PROGRAF [Suspect]
     Indication: LIVER TRANSPLANT
     Dosage: 2 MG, BID
     Route: 048
  2. MYCOPHENOLATE MOFETIL [Concomitant]
     Dosage: 0.375 G, BID
     Route: 065

REACTIONS (2)
  - Hallucination [Recovered/Resolved]
  - Mania [Recovered/Resolved]
